FAERS Safety Report 10677249 (Version 2)
Quarter: 2017Q2

REPORT INFORMATION
  Report Type: Report from Study
  Country: None (occurrence: KR)
  Receive Date: 20141226
  Receipt Date: 20170524
  Transmission Date: 20170829
  Serious: Yes (Hospitalization)
  Sender: FDA-Public Use
  Company Number: KR-ABBVIE-14P-090-1326342-00

PATIENT
  Age: 65 Year
  Sex: Male

DRUGS (20)
  1. GABAPENTIN. [Concomitant]
     Active Substance: GABAPENTIN
     Indication: NECK PAIN
     Route: 048
     Dates: start: 20130312, end: 20141127
  2. ASPIRIN. [Concomitant]
     Active Substance: ASPIRIN
     Indication: PROPHYLAXIS
     Route: 048
     Dates: start: 20080613
  3. TACENOL [Concomitant]
     Indication: PROPHYLAXIS
  4. TEVETEN [Suspect]
     Active Substance: EPROSARTAN MESYLATE
     Indication: PRODUCT USED FOR UNKNOWN INDICATION
     Route: 048
     Dates: start: 20140901
  5. LODINE [Concomitant]
     Active Substance: ETODOLAC
     Indication: ARTHRALGIA
     Route: 048
     Dates: start: 20141128
  6. ANOREX [Concomitant]
     Active Substance: PHENMETRAZINE HYDROCHLORIDE
     Indication: NECK PAIN
     Route: 048
     Dates: start: 20090121, end: 20141127
  7. ARAVA [Concomitant]
     Active Substance: LEFLUNOMIDE
     Indication: ARTHRALGIA
     Route: 048
     Dates: start: 20110316
  8. ASPIRIN. [Concomitant]
     Active Substance: ASPIRIN
     Indication: PROPHYLAXIS
  9. ADISEN [Concomitant]
     Indication: NECK PAIN
     Route: 048
     Dates: start: 20140919
  10. FOLIC ACID. [Concomitant]
     Active Substance: FOLIC ACID
     Indication: ARTHRALGIA
     Route: 048
     Dates: start: 20120314
  11. HYTRIN [Concomitant]
     Active Substance: TERAZOSIN HYDROCHLORIDE
     Indication: BENIGN PROSTATIC HYPERPLASIA
     Route: 048
     Dates: start: 20100226
  12. RHINOVENT [Concomitant]
     Indication: VASOMOTOR RHINITIS
     Dosage: NASAL SOLUTION
     Route: 045
     Dates: start: 20140912
  13. STILLEN [Concomitant]
     Indication: GASTRIC DISORDER
     Route: 048
     Dates: start: 20090121, end: 20141127
  14. ALLED [Concomitant]
     Indication: PRURITUS
     Route: 048
     Dates: start: 20140930
  15. STILLEN [Concomitant]
     Indication: PROPHYLAXIS
  16. TACENOL [Concomitant]
     Indication: ARTHRALGIA
     Route: 048
     Dates: start: 20140903
  17. LIMADIN [Concomitant]
     Indication: NECK PAIN
     Route: 048
     Dates: start: 20140919
  18. VESICARE [Concomitant]
     Active Substance: SOLIFENACIN SUCCINATE
     Indication: BENIGN PROSTATIC HYPERPLASIA
     Route: 048
     Dates: start: 20130116
  19. TALION [Concomitant]
     Active Substance: BEPOTASTINE
     Indication: VASOMOTOR RHINITIS
     Route: 048
     Dates: start: 20140912
  20. MOTESON [Concomitant]
     Indication: VASOMOTOR RHINITIS
     Route: 045
     Dates: start: 20141017

REACTIONS (1)
  - Large intestine polyp [Recovered/Resolved]

NARRATIVE: CASE EVENT DATE: 20141104
